FAERS Safety Report 7010189-6 (Version None)
Quarter: 2010Q3

REPORT INFORMATION
  Report Type: 
  Country: None (occurrence: None)
  Receive Date: 20100923
  Receipt Date: 20091103
  Transmission Date: 20110219
  Serious: No
  Sender: FDA-Public Use
  Company Number: US-BAUSCH-2009BL005524

PATIENT
  Sex: Female

DRUGS (1)
  1. ERYTHROCIN 1% [Suspect]
     Indication: EYE INFECTION

REACTIONS (1)
  - DRUG INEFFECTIVE [None]
